FAERS Safety Report 14574322 (Version 1)
Quarter: 2018Q1

REPORT INFORMATION
  Report Type: Spontaneous
  Country: GB (occurrence: GB)
  Receive Date: 20180226
  Receipt Date: 20180226
  Transmission Date: 20180509
  Serious: Yes (Other)
  Sender: FDA-Public Use
  Company Number: GB-IMPAX LABORATORIES, INC-2018-IPXL-00547

PATIENT
  Age: 38 Year
  Sex: Male

DRUGS (2)
  1. DESMOPRESSIN ACETATE IR [Suspect]
     Active Substance: DESMOPRESSIN ACETATE
     Indication: PRODUCT USE IN UNAPPROVED INDICATION
  2. DESMOPRESSIN ACETATE IR [Suspect]
     Active Substance: DESMOPRESSIN ACETATE
     Indication: HYPERTONIC BLADDER
     Dosage: UNK
     Route: 045

REACTIONS (2)
  - Chorioretinopathy [Unknown]
  - Product use in unapproved indication [Unknown]
